FAERS Safety Report 14370484 (Version 2)
Quarter: 2018Q1

REPORT INFORMATION
  Report Type: Spontaneous
  Country: US (occurrence: US)
  Receive Date: 20180110
  Receipt Date: 20180201
  Transmission Date: 20180509
  Serious: No
  Sender: FDA-Public Use
  Company Number: US-PFIZER INC-2018005164

PATIENT
  Age: 41 Year
  Sex: Female

DRUGS (15)
  1. XANAX [Suspect]
     Active Substance: ALPRAZOLAM
     Indication: ANXIETY
     Dosage: 1 MG, THREE TIMES A DAY
     Dates: start: 1994, end: 201710
  2. GABAPENTIN. [Concomitant]
     Active Substance: GABAPENTIN
     Indication: FIBROMYALGIA
     Dosage: 1200 MG, DAILY (600 MG, TABLET, BY MOUTH, TWO A DAY)
     Route: 048
     Dates: start: 1994, end: 201710
  3. POTASSIUM [Concomitant]
     Active Substance: POTASSIUM
     Indication: BLOOD POTASSIUM ABNORMAL
     Dosage: 1 DF, 2X/DAY (ONE CAPSULE TWO TIMES A DAY)
     Route: 048
     Dates: start: 1994
  4. METHOCARBAMOL. [Concomitant]
     Active Substance: METHOCARBAMOL
     Indication: MUSCLE SPASMS
     Dosage: 500 MG, 2X/DAY
     Route: 048
     Dates: start: 1994
  5. BUMETANIDE. [Concomitant]
     Active Substance: BUMETANIDE
     Indication: DIURETIC THERAPY
     Dosage: 1 MG, ALTERNATE DAY (1 MG, TABLET, BY MOUTH, EVERY OTHER DAY)
     Route: 048
     Dates: start: 2015
  6. ERGOCALCIFEROL. [Concomitant]
     Active Substance: ERGOCALCIFEROL
     Indication: VITAMIN D ABNORMAL
     Dosage: 2 DF, WEEKLY (5000 UNITS, 2 CAPSULES ONCE A WEEK)
     Dates: start: 2016, end: 201710
  7. LIPITOR [Concomitant]
     Active Substance: ATORVASTATIN CALCIUM
     Indication: BLOOD CHOLESTEROL INCREASED
     Dosage: 40 MG, DAILY (40 MG, BY MOUTH, ONE TABLET AT BEDTIME)
     Route: 048
     Dates: start: 2015
  8. METHOCARBAMOL. [Concomitant]
     Active Substance: METHOCARBAMOL
     Indication: RESTLESS LEGS SYNDROME
  9. RESTASIS [Concomitant]
     Active Substance: CYCLOSPORINE
     Dosage: 2 GTT, 2X/DAY (ONE DROP IN EACH EYE TWO TIMES A DAY)
     Dates: start: 2016
  10. LOSARTAN. [Concomitant]
     Active Substance: LOSARTAN
     Indication: BLOOD PRESSURE ABNORMAL
     Dosage: 100 MG, 1X/DAY
     Route: 048
     Dates: start: 2017
  11. METHOTREXATE. [Concomitant]
     Active Substance: METHOTREXATE
     Indication: RHEUMATOID ARTHRITIS
     Dosage: UNK
     Dates: start: 2016
  12. MAGNESIUM [Concomitant]
     Active Substance: MAGNESIUM
     Indication: BLOOD MAGNESIUM ABNORMAL
     Dosage: 500 MG, 1X/DAY
     Route: 048
     Dates: start: 1994
  13. VENTOLIN [Concomitant]
     Active Substance: ALBUTEROL SULFATE
     Indication: ASTHMA
     Dosage: TWO PUFFS PRN
     Dates: start: 1968
  14. ARMODAFINIL. [Concomitant]
     Active Substance: ARMODAFINIL
     Indication: SLEEP APNOEA SYNDROME
     Dosage: 250 MG, 1X/DAY (250 MG, TABLET, ONCE IN THE MORNING)
     Dates: start: 2015
  15. FOLIC ACID. [Concomitant]
     Active Substance: FOLIC ACID
     Dosage: 2 MG, DAILY (1 MG, ORALLY, TWO TABLETS DAILY)
     Route: 048
     Dates: start: 2016

REACTIONS (3)
  - Inflammation [Unknown]
  - Condition aggravated [Recovered/Resolved]
  - Pyrexia [Recovered/Resolved]

NARRATIVE: CASE EVENT DATE: 1994
